FAERS Safety Report 4862246-8 (Version None)
Quarter: 2005Q4

REPORT INFORMATION
  Report Type: 
  Country: None (occurrence: None)
  Receive Date: 20051130
  Receipt Date: 20051019
  Transmission Date: 20060501
  Serious: Yes (Hospitalization)
  Sender: FDA-Public Use
  Company Number: A03200503332

PATIENT
  Age: 54 Year
  Sex: Female
  Weight: 117.9352 kg

DRUGS (9)
  1. ELOXATIN [Suspect]
     Indication: COLON CANCER
     Dosage: 170 MG OTHER - INTRAVENOUS NOS
     Route: 042
     Dates: start: 20051010, end: 20051010
  2. ELOXATIN [Suspect]
     Indication: METASTASES TO LIVER
     Dosage: 170 MG OTHER - INTRAVENOUS NOS
     Route: 042
     Dates: start: 20051010, end: 20051010
  3. FLUOROURACIL [Concomitant]
  4. LEUCOVORIN [Concomitant]
  5. DOLASETRON MESILATE [Concomitant]
  6. DEXAMETHASONE TAB [Concomitant]
  7. MAGNESIUM [Concomitant]
  8. CALCIUM GLUCONATE [Concomitant]
  9. LORAZEPAM [Concomitant]

REACTIONS (10)
  - ANAPHYLACTIC REACTION [None]
  - BLOOD PRESSURE SYSTOLIC DECREASED [None]
  - DIZZINESS [None]
  - DYSPNOEA [None]
  - FEELING HOT [None]
  - FLUSHING [None]
  - HEART RATE INCREASED [None]
  - NAUSEA [None]
  - VISUAL DISTURBANCE [None]
  - YAWNING [None]
